FAERS Safety Report 9189210 (Version 1)
Quarter: 2013Q1

REPORT INFORMATION
  Report Type: Spontaneous
  Country: US (occurrence: None)
  Receive Date: 20130321
  Receipt Date: 20130321
  Transmission Date: 20140127
  Serious: Yes (Other)
  Sender: FDA-Public Use
  Company Number: None

PATIENT
  Age: 86 Year
  Sex: Female
  Weight: 45.36 kg

DRUGS (1)
  1. WARFARIN [Suspect]
     Indication: ATRIAL FIBRILLATION
     Dosage: 2.5 MG   ONCE DAILY   PO?02/28/2031   --   03/18/2013
     Route: 048
     Dates: start: 20130228, end: 20130318

REACTIONS (2)
  - International normalised ratio increased [None]
  - Gingival bleeding [None]
